FAERS Safety Report 4631006-5 (Version None)
Quarter: 2005Q2

REPORT INFORMATION
  Report Type: 
  Country: None (occurrence: None)
  Receive Date: 20050406
  Receipt Date: 20050406
  Transmission Date: 20051028
  Serious: Yes (Hospitalization)
  Sender: FDA-Public Use
  Company Number: None

PATIENT
  Age: 59 Year
  Sex: Male
  Weight: 109.7705 kg

DRUGS (2)
  1. MAGNEVIST [Suspect]
     Indication: CHOLANGIOGRAM
     Dosage: 1 DOSE INTRAVENOUS
     Route: 042
     Dates: start: 20050307, end: 20050307
  2. MAGNEVIST [Suspect]
     Indication: NUCLEAR MAGNETIC RESONANCE IMAGING
     Dosage: 1 DOSE INTRAVENOUS
     Route: 042
     Dates: start: 20050307, end: 20050307

REACTIONS (2)
  - ANAPHYLACTIC REACTION [None]
  - CONTRAST MEDIA REACTION [None]
